FAERS Safety Report 25391737 (Version 2)
Quarter: 2025Q3

REPORT INFORMATION
  Report Type: Report from Study
  Country: US (occurrence: US)
  Receive Date: 20250603
  Receipt Date: 20250707
  Transmission Date: 20251021
  Serious: Yes (Other)
  Sender: MYLAN
  Company Number: US-MYLANLABS-2025M1046460

PATIENT
  Sex: Female

DRUGS (1)
  1. GLATIRAMER ACETATE [Suspect]
     Active Substance: GLATIRAMER ACETATE
     Indication: Multiple sclerosis
     Dosage: 40 MILLIGRAM, 3XW (THREE TIMES PER WEEK)

REACTIONS (14)
  - Multiple sclerosis relapse [Unknown]
  - Abdominal discomfort [Unknown]
  - Taste disorder [Unknown]
  - Peripheral coldness [Unknown]
  - Skin swelling [Unknown]
  - Injection site swelling [Unknown]
  - Chest discomfort [Recovered/Resolved]
  - Injection site mass [Unknown]
  - Headache [Unknown]
  - Injection site erythema [Unknown]
  - Fatigue [Unknown]
  - Heart rate increased [Unknown]
  - Hyperhidrosis [Unknown]
  - Pruritus [Unknown]
